FAERS Safety Report 14771810 (Version 1)
Quarter: 2018Q2

REPORT INFORMATION
  Report Type: Spontaneous
  Country: US (occurrence: US)
  Receive Date: 20180417
  Receipt Date: 20180417
  Transmission Date: 20180711
  Serious: No
  Sender: FDA-Public Use
  Company Number: US-ALLERGAN-1756793US

PATIENT
  Age: 50 Year
  Sex: Female

DRUGS (1)
  1. LATISSE [Suspect]
     Active Substance: BIMATOPROST
     Indication: PRODUCT USED FOR UNKNOWN INDICATION
     Dosage: QHS
     Route: 061
     Dates: start: 201709, end: 20170927

REACTIONS (5)
  - Eyelid skin dryness [Recovering/Resolving]
  - Eyelid pain [Recovering/Resolving]
  - Eyelid margin crusting [Recovering/Resolving]
  - Skin wrinkling [Recovering/Resolving]
  - Erythema of eyelid [Recovering/Resolving]

NARRATIVE: CASE EVENT DATE: 201709
